FAERS Safety Report 13890972 (Version 1)
Quarter: 2017Q3

REPORT INFORMATION
  Report Type: Spontaneous
  Country: SK (occurrence: SK)
  Receive Date: 20170822
  Receipt Date: 20170822
  Transmission Date: 20171127
  Serious: Yes (Other)
  Sender: FDA-Public Use
  Company Number: SK-MYLANLABS-2017M1050781

PATIENT

DRUGS (2)
  1. RYTMONORM 300 MG [Suspect]
     Active Substance: PROPAFENONE
     Indication: TACHYCARDIA
  2. RYTMONORM 300 MG [Suspect]
     Active Substance: PROPAFENONE
     Indication: ARRHYTHMIA
     Dosage: UNK

REACTIONS (1)
  - Drug ineffective [Unknown]
